FAERS Safety Report 25239596 (Version 1)
Quarter: 2025Q2

REPORT INFORMATION
  Report Type: Spontaneous
  Country: US (occurrence: US)
  Receive Date: 20250425
  Receipt Date: 20250425
  Transmission Date: 20250717
  Serious: Yes (Other)
  Sender: MYLAN
  Company Number: US-MYLANLABS-2025M1034711

PATIENT
  Age: 27 Year
  Sex: Female

DRUGS (3)
  1. LINACLOTIDE [Suspect]
     Active Substance: LINACLOTIDE
     Indication: Constipation
  2. PLECANATIDE [Suspect]
     Active Substance: PLECANATIDE
     Indication: Constipation
  3. PRUCALOPRIDE [Suspect]
     Active Substance: PRUCALOPRIDE
     Indication: Constipation

REACTIONS (2)
  - Treatment failure [Unknown]
  - Off label use [Unknown]
